FAERS Safety Report 4461600-6 (Version None)
Quarter: 2004Q3

REPORT INFORMATION
  Report Type: 
  Country: None (occurrence: None)
  Receive Date: 20040924
  Receipt Date: 20040924
  Transmission Date: 20050211
  Serious: Yes (Hospitalization)
  Sender: FDA-Public Use
  Company Number: None

PATIENT
  Age: 44 Year
  Sex: Female
  Weight: 61.2356 kg

DRUGS (1)
  1. IBUPROFEN [Suspect]
     Indication: ANTIINFLAMMATORY THERAPY
     Dosage: 400 MG  EVERY 4 HOURS  ORAL
     Route: 048
     Dates: start: 20040513, end: 20040516

REACTIONS (1)
  - STEVENS-JOHNSON SYNDROME [None]
